FAERS Safety Report 9855463 (Version 1)
Quarter: 2013Q4

REPORT INFORMATION
  Report Type: Spontaneous
  Country: US (occurrence: None)
  Receive Date: 20131226
  Receipt Date: 20131226
  Transmission Date: 20140711
  Serious: Yes (Other)
  Sender: FDA-Public Use
  Company Number: PHEH2012US018663

PATIENT
  Sex: Male

DRUGS (1)
  1. SANDOSTATIN LAR DEPOT (OCTREOTIDE WITH POLY(D L-LACTIDE-CO-GLYCOLIDE)) SUSPENSION [Suspect]
     Indication: ACROMEGALY
     Dosage: 20 MG , EVERY 28 DAYS, INTRAMUSCULAR
     Route: 030

REACTIONS (2)
  - VIIth nerve paralysis [None]
  - Dysarthria [None]
